FAERS Safety Report 19074479 (Version 1)
Quarter: 2021Q1

REPORT INFORMATION
  Report Type: Spontaneous
  Country: DK (occurrence: DK)
  Receive Date: 20210330
  Receipt Date: 20210330
  Transmission Date: 20210420
  Serious: Yes (Hospitalization)
  Sender: FDA-Public Use
  Company Number: DK-PFIZER INC-2021302181

PATIENT
  Age: 38 Year
  Sex: Male

DRUGS (5)
  1. RUXIENCE [Suspect]
     Active Substance: RITUXIMAB-PVVR
     Dosage: AT 800 MG (IN 500ML NACL)
     Route: 042
     Dates: start: 20210303, end: 20210303
  2. TRAMADOL KRKA [Concomitant]
     Indication: PAIN
     Dosage: UNK
     Dates: start: 20210220
  3. LOCOID [Concomitant]
     Active Substance: HYDROCORTISONE BUTYRATE
     Indication: ECZEMA
     Dosage: UNK
     Dates: start: 20210224
  4. BUDENOFALK [Concomitant]
     Active Substance: BUDESONIDE
     Indication: GASTROINTESTINAL INFLAMMATION
     Dosage: UNK
     Dates: start: 20201208
  5. RUXIENCE [Suspect]
     Active Substance: RITUXIMAB-PVVR
     Indication: MANTLE CELL LYMPHOMA
     Dosage: AT 800 MG (IN 500ML NACL)
     Route: 042
     Dates: start: 20210212, end: 20210212

REACTIONS (2)
  - Atrial fibrillation [Recovered/Resolved]
  - Palpitations [Recovered/Resolved]

NARRATIVE: CASE EVENT DATE: 20210303
